FAERS Safety Report 13266831 (Version 12)
Quarter: 2018Q1

REPORT INFORMATION
  Report Type: Report from Study
  Country: IL (occurrence: IL)
  Receive Date: 20170224
  Receipt Date: 20180313
  Transmission Date: 20180508
  Serious: Yes (Hospitalization)
  Sender: FDA-Public Use
  Company Number: IL-ROCHE-1897363

PATIENT
  Age: 78 Year
  Sex: Male
  Weight: 78 kg

DRUGS (29)
  1. AMLODIPINE [Concomitant]
     Active Substance: AMLODIPINE BESYLATE
     Indication: HYPERTENSION
     Route: 065
  2. MIRTAZAPINE. [Concomitant]
     Active Substance: MIRTAZAPINE
     Route: 065
  3. AEROVENT (ISRAEL) [Concomitant]
     Indication: ASTHMA
  4. TAVANIC [Concomitant]
     Active Substance: LEVOFLOXACIN
     Route: 065
     Dates: start: 20170118, end: 20170121
  5. OPTALGIN [Concomitant]
     Active Substance: METAMIZOLE
     Indication: INFECTION
     Route: 065
     Dates: start: 20170323, end: 20170323
  6. LORIVAN [Concomitant]
     Route: 065
  7. LYRICA [Concomitant]
     Active Substance: PREGABALIN
     Indication: ANALGESIC THERAPY
     Route: 065
  8. NORMAL SALINE [Concomitant]
     Active Substance: SODIUM CHLORIDE
     Indication: INFECTION
     Dosage: 1000 CC
     Route: 065
     Dates: start: 20170218, end: 20170220
  9. NORMAL SALINE [Concomitant]
     Active Substance: SODIUM CHLORIDE
     Indication: PREMEDICATION
     Route: 065
     Dates: start: 20170212, end: 20170212
  10. OMEPRADEX [Concomitant]
     Active Substance: OMEPRAZOLE
     Indication: PROPHYLAXIS
     Route: 065
     Dates: start: 20170322, end: 20170323
  11. CARBOPLATIN. [Suspect]
     Active Substance: CARBOPLATIN
     Indication: NON-SMALL CELL LUNG CANCER STAGE IV
     Dosage: TARGET AUC = 6 MG/ML/MIN?DATE OF  MOST RECENT DOSE, 12/FEB/2017 (390 MG)
     Route: 042
     Dates: start: 20170212
  12. MICROPIRIN [Concomitant]
     Active Substance: ASPIRIN
     Route: 065
  13. ZALDIAR [Concomitant]
     Active Substance: ACETAMINOPHEN\TRAMADOL HYDROCHLORIDE
     Indication: PAIN
  14. TAVANIC [Concomitant]
     Active Substance: LEVOFLOXACIN
     Indication: INFECTION
     Route: 065
     Dates: start: 20170218, end: 20170220
  15. OPTALGIN [Concomitant]
     Active Substance: METAMIZOLE
     Indication: PYREXIA
     Route: 065
     Dates: start: 20170118, end: 20170122
  16. NORMAL SALINE [Concomitant]
     Active Substance: SODIUM CHLORIDE
     Route: 065
     Dates: start: 20170322, end: 20170323
  17. FOLIC ACID. [Concomitant]
     Active Substance: FOLIC ACID
  18. ATORVASTATIN [Concomitant]
     Active Substance: ATORVASTATIN
     Indication: HYPERLIPIDAEMIA
  19. TRIBEMIN [Concomitant]
  20. ASPIRIN. [Concomitant]
     Active Substance: ASPIRIN
  21. ATEZOLIZUMAB. [Suspect]
     Active Substance: ATEZOLIZUMAB
     Indication: NON-SMALL CELL LUNG CANCER STAGE IV
     Dosage: FIXED DOSE PER PROTOCOL. DATE OF MOST RECENT DOSE, 12/FEB/2017
     Route: 042
     Dates: start: 20170212
  22. ATENOLOL. [Concomitant]
     Active Substance: ATENOLOL
     Route: 065
  23. TAMIFLU [Concomitant]
     Active Substance: OSELTAMIVIR PHOSPHATE
     Indication: INFECTION
     Route: 048
     Dates: start: 20170118, end: 20170121
  24. NORMALOL [Concomitant]
     Active Substance: ATENOLOL
     Indication: HYPERTENSION
  25. PEMETREXED. [Suspect]
     Active Substance: PEMETREXED
     Indication: NON-SMALL CELL LUNG CANCER STAGE IV
     Dosage: DATE OF MOST RECENT DOSE, 12/FEB/2017 (965 MG) AND 12/MAR/2017 (965 MG)
     Route: 042
     Dates: start: 20170212
  26. ZANTAC [Concomitant]
     Active Substance: RANITIDINE HYDROCHLORIDE
     Indication: PREMEDICATION
     Route: 065
     Dates: start: 20170212, end: 20170212
  27. BONDORMIN [Concomitant]
     Active Substance: BROTIZOLAM
     Route: 065
  28. PALOXI [Concomitant]
     Active Substance: PALONOSETRON HYDROCHLORIDE
     Route: 065
     Dates: start: 20170212, end: 20170212
  29. REPAGLINIDE. [Concomitant]
     Active Substance: REPAGLINIDE
     Indication: TYPE 2 DIABETES MELLITUS
     Route: 065
     Dates: start: 201703

REACTIONS (2)
  - Renal impairment [Recovered/Resolved]
  - Urinary tract infection [Recovered/Resolved]

NARRATIVE: CASE EVENT DATE: 20170218
